FAERS Safety Report 4883672-7 (Version None)
Quarter: 2006Q1

REPORT INFORMATION
  Report Type: 
  Country: None (occurrence: None)
  Receive Date: 20060113
  Receipt Date: 20060103
  Transmission Date: 20060701
  Serious: Yes (Hospitalization)
  Sender: FDA-Public Use
  Company Number: US200601000365

PATIENT
  Age: 78 Year
  Sex: Male

DRUGS (4)
  1. ZYPREXA(OLANZAPINE) [Suspect]
     Indication: DEMENTIA
     Dosage: 20 MG, DAILY (1/D), ORAL
     Route: 048
     Dates: start: 20040101
  2. SINEMET                                /NET/(CARBIDOPA, LEVODOPA) [Concomitant]
  3. ARICEPT                     /JPN/ (DONEPEZIL HYDROCHLORIDE) [Concomitant]
  4. PAXIL [Concomitant]

REACTIONS (4)
  - CONDITION AGGRAVATED [None]
  - DEMENTIA [None]
  - FEELING ABNORMAL [None]
  - PNEUMONIA [None]
